FAERS Safety Report 25432085 (Version 2)
Quarter: 2025Q3

REPORT INFORMATION
  Report Type: Spontaneous
  Country: US (occurrence: US)
  Receive Date: 20250613
  Receipt Date: 20250715
  Transmission Date: 20251021
  Serious: Yes (Hospitalization, Other)
  Sender: RANBAXY
  Company Number: US-SUN PHARMACEUTICAL INDUSTRIES LTD-2025R1-511366

PATIENT
  Age: 55 Year
  Sex: Male

DRUGS (2)
  1. PALIPERIDONE [Suspect]
     Active Substance: PALIPERIDONE
     Indication: Major depression
     Route: 065
  2. PALIPERIDONE [Suspect]
     Active Substance: PALIPERIDONE
     Indication: Psychotic disorder

REACTIONS (4)
  - Myoclonus [Recovering/Resolving]
  - Mental status changes [Recovering/Resolving]
  - Drug ineffective [Unknown]
  - Dementia with Lewy bodies [Recovering/Resolving]
